FAERS Safety Report 9031890 (Version 1)
Quarter: 2013Q1

REPORT INFORMATION
  Report Type: Spontaneous
  Country: US (occurrence: US)
  Receive Date: 20130125
  Receipt Date: 20130125
  Transmission Date: 20140127
  Serious: No
  Sender: FDA-Public Use
  Company Number: US-TARO-2012P1044243

PATIENT
  Age: 61 Year
  Sex: Female
  Weight: 46.27 kg

DRUGS (6)
  1. TOPICORT [Suspect]
     Indication: URTICARIA
     Route: 061
     Dates: start: 20120616, end: 20120616
  2. UNSPECIFIED INGREDIENT [Concomitant]
  3. ALLERGY DRUGS [Concomitant]
  4. AMITRIPTYLINE [Concomitant]
  5. PROZAC [Concomitant]
  6. ^OTHER MEDICATIONS^ [Concomitant]

REACTIONS (2)
  - Urticaria [Recovering/Resolving]
  - Pruritus [Recovering/Resolving]
